FAERS Safety Report 12842382 (Version 1)
Quarter: 2016Q4

REPORT INFORMATION
  Report Type: Spontaneous
  Country: US (occurrence: US)
  Receive Date: 20161013
  Receipt Date: 20161013
  Transmission Date: 20170207
  Serious: No
  Sender: FDA-Public Use
  Company Number: US-TEVA-700454USA

PATIENT
  Age: 67 Year
  Sex: Female

DRUGS (4)
  1. VIACTIVE MULTIVITAMIN [Concomitant]
  2. DETROL [Concomitant]
     Active Substance: TOLTERODINE TARTRATE
  3. GLUCOSAMINE [Concomitant]
     Active Substance: GLUCOSAMINE
  4. COPAXONE [Suspect]
     Active Substance: GLATIRAMER ACETATE
     Indication: MULTIPLE SCLEROSIS
     Route: 058
     Dates: start: 20160125

REACTIONS (3)
  - Drug dose omission [Unknown]
  - Pain [Unknown]
  - Dyspnoea [Unknown]

NARRATIVE: CASE EVENT DATE: 201609
